FAERS Safety Report 5166273-5 (Version None)
Quarter: 2006Q4

REPORT INFORMATION
  Report Type: 
  Country: None (occurrence: None)
  Receive Date: 20061124
  Receipt Date: 20061121
  Transmission Date: 20070319
  Serious: Yes (Other)
  Sender: FDA-Public Use
  Company Number: 2006102045

PATIENT
  Age: 15 Year
  Sex: Female

DRUGS (3)
  1. NEURONTIN [Suspect]
     Indication: BIPOLAR DISORDER
     Dosage: 600 MG (300 MG,2 IN 1 D)
     Dates: start: 20011112
  2. CELEXA [Suspect]
     Indication: BIPOLAR DISORDER
     Dosage: 30 MG (1 IN 1 D)
     Dates: start: 20011128
  3. TRAZODONE HCL [Concomitant]

REACTIONS (2)
  - DRUG INEFFECTIVE [None]
  - SUICIDE ATTEMPT [None]
